FAERS Safety Report 9018126 (Version 1)
Quarter: 2013Q1

REPORT INFORMATION
  Report Type: Spontaneous
  Country: US (occurrence: US)
  Receive Date: 20130117
  Receipt Date: 20130117
  Transmission Date: 20140127
  Serious: No
  Sender: FDA-Public Use
  Company Number: US-009507513-1301USA003430

PATIENT
  Age: 26 Year
  Sex: Female
  Weight: 230 kg

DRUGS (1)
  1. IMPLANON [Suspect]
     Indication: CONTRACEPTION
     Dosage: 1 DF, UNK
     Dates: start: 200901

REACTIONS (5)
  - Implant site pruritus [Unknown]
  - Implant site pain [Unknown]
  - Amenorrhoea [Unknown]
  - Device damage [Unknown]
  - Incorrect drug administration duration [Unknown]
